FAERS Safety Report 18088522 (Version 1)
Quarter: 2020Q3

REPORT INFORMATION
  Report Type: Spontaneous
  Country: US (occurrence: US)
  Receive Date: 20200729
  Receipt Date: 20200729
  Transmission Date: 20201103
  Serious: No
  Sender: FDA-Public Use
  Company Number: US-PUMA BIOTECHNOLOGY, LTD.-2020US002840

PATIENT

DRUGS (2)
  1. NERLYNX [Suspect]
     Active Substance: NERATINIB
     Indication: NEOPLASM MALIGNANT
  2. NERLYNX [Suspect]
     Active Substance: NERATINIB
     Indication: HER2 PROTEIN OVEREXPRESSION
     Dosage: UNK
     Route: 065

REACTIONS (1)
  - Off label use [Unknown]
